FAERS Safety Report 10204413 (Version 2)
Quarter: 2014Q2

REPORT INFORMATION
  Report Type: Report from Study
  Country: US (occurrence: US)
  Receive Date: 20140529
  Receipt Date: 20140602
  Transmission Date: 20141212
  Serious: Yes (Disabling)
  Sender: FDA-Public Use
  Company Number: US-OTSUKA-US-2014-11108

PATIENT
  Age: 44 Year
  Sex: Male

DRUGS (2)
  1. OPC-14597 [Suspect]
     Indication: BIPOLAR I DISORDER
     Dosage: UNK
     Route: 030
     Dates: start: 20131206, end: 20140327
  2. OPC-14597 [Suspect]
     Dosage: 300 MG MILLIGRAM(S), UNK
     Route: 030
     Dates: start: 20140328, end: 20140328

REACTIONS (1)
  - Tardive dyskinesia [Recovering/Resolving]
